FAERS Safety Report 15663299 (Version 1)
Quarter: 2018Q4

REPORT INFORMATION
  Report Type: Spontaneous
  Country: FR (occurrence: FR)
  Receive Date: 20181128
  Receipt Date: 20181128
  Transmission Date: 20190205
  Serious: Yes (Hospitalization)
  Sender: FDA-Public Use
  Company Number: FR-TEVA-2018-FR-979284

PATIENT
  Age: 75 Year
  Sex: Male

DRUGS (2)
  1. AZITHROMYCINE ANHYDRE [Suspect]
     Active Substance: AZITHROMYCIN ANHYDROUS
     Indication: LUNG DISORDER
     Dosage: 500 MILLIGRAM DAILY;
     Route: 048
     Dates: start: 20180918, end: 20180924
  2. CEFOTAXIME BASE [Suspect]
     Active Substance: CEFOTAXIME SODIUM
     Indication: LUNG DISORDER
     Dosage: 3 GRAM DAILY;
     Route: 042
     Dates: start: 20180918, end: 20180925

REACTIONS (1)
  - Encephalitis [Recovered/Resolved]

NARRATIVE: CASE EVENT DATE: 20180919
